FAERS Safety Report 21191229 (Version 1)
Quarter: 2022Q3

REPORT INFORMATION
  Report Type: Spontaneous
  Country: US (occurrence: US)
  Receive Date: 20220809
  Receipt Date: 20220809
  Transmission Date: 20221026
  Serious: No
  Sender: FDA-Public Use
  Company Number: US-Covis Pharma GmbH-2022COV02303

PATIENT
  Sex: Female

DRUGS (7)
  1. ALVESCO [Suspect]
     Active Substance: CICLESONIDE
     Indication: Asthma
     Dosage: ORAL INHALATION, 2 PUFF 2X DAILY
  2. ALVESCO [Suspect]
     Active Substance: CICLESONIDE
     Indication: Asthma
  3. CRESTOR [Concomitant]
     Active Substance: ROSUVASTATIN CALCIUM
  4. CYMBALTA [Concomitant]
     Active Substance: DULOXETINE HYDROCHLORIDE
  5. IPRATROPIUM BROMIDE [Concomitant]
     Active Substance: IPRATROPIUM BROMIDE
  6. RHOPRESSA [Concomitant]
     Active Substance: NETARSUDIL MESYLATE
  7. ZIOPTAN [Concomitant]
     Active Substance: TAFLUPROST

REACTIONS (2)
  - Dysphonia [Not Recovered/Not Resolved]
  - Incorrect dose administered [Unknown]
